FAERS Safety Report 7196698-8 (Version None)
Quarter: 2010Q4

REPORT INFORMATION
  Report Type: 
  Country: None (occurrence: None)
  Receive Date: 20101223
  Receipt Date: 20101029
  Transmission Date: 20110411
  Serious: No
  Sender: FDA-Public Use
  Company Number: US-AMGEN-USASP2010000545

PATIENT

DRUGS (7)
  1. ENBREL [Suspect]
     Indication: POLYMYALGIA RHEUMATICA
     Dosage: 50 MG, QWK
     Dates: start: 20100908
  2. METHOTREXATE [Concomitant]
     Dosage: UNK
     Dates: start: 20090820
  3. FOLIC ACID [Concomitant]
     Dosage: UNK
     Dates: start: 20090820
  4. FUROSEMIDE [Concomitant]
     Dosage: UNK
     Dates: start: 20090509
  5. LAMOTRIGINE [Concomitant]
     Dosage: UNK
     Dates: start: 20090624
  6. LYRICA [Concomitant]
     Dosage: UNK
     Dates: start: 20081021
  7. PANTOPRAZOLE [Concomitant]
     Dosage: UNK
     Dates: start: 20060606

REACTIONS (2)
  - ARTHRALGIA [None]
  - PAIN IN EXTREMITY [None]
